FAERS Safety Report 6686800-6 (Version None)
Quarter: 2010Q2

REPORT INFORMATION
  Report Type: 
  Country: None (occurrence: None)
  Receive Date: 20100419
  Receipt Date: 20100409
  Transmission Date: 20101027
  Serious: Yes (Death)
  Sender: FDA-Public Use
  Company Number: GXKR2010NG04029

PATIENT
  Age: 30 Year
  Sex: Female

DRUGS (5)
  1. BROMOCRIPTINE (NGX) [Suspect]
     Indication: NEOPLASM MALIGNANT
     Route: 048
  2. AMPICLOX [Concomitant]
  3. METRONIDAZOLE [Concomitant]
  4. MEPERIDINE HCL [Concomitant]
  5. PROMETHAZINE [Concomitant]

REACTIONS (7)
  - ACCELERATED HYPERTENSION [None]
  - CARDIAC ARREST [None]
  - DRUG EXPOSURE DURING PREGNANCY [None]
  - DYSPNOEA [None]
  - ENCEPHALOPATHY [None]
  - LOSS OF CONSCIOUSNESS [None]
  - RESTLESSNESS [None]
